FAERS Safety Report 7715850-3 (Version None)
Quarter: 2011Q3

REPORT INFORMATION
  Report Type: 
  Country: None (occurrence: None)
  Receive Date: 20110829
  Receipt Date: 20110829
  Transmission Date: 20111222
  Serious: No
  Sender: FDA-Public Use
  Company Number: None

PATIENT
  Age: 67 Year
  Sex: Male
  Weight: 76.657 kg

DRUGS (1)
  1. ZOCOR [Suspect]

REACTIONS (3)
  - MYALGIA [None]
  - MUSCLE RUPTURE [None]
  - MUSCLE DISORDER [None]
